FAERS Safety Report 7722198-X (Version None)
Quarter: 2011Q3

REPORT INFORMATION
  Report Type: 
  Country: None (occurrence: None)
  Receive Date: 20110831
  Receipt Date: 20110829
  Transmission Date: 20111222
  Serious: Yes (Hospitalization)
  Sender: FDA-Public Use
  Company Number: BR-ABBOTT-11P-020-0850253-00

PATIENT
  Sex: Female
  Weight: 83 kg

DRUGS (5)
  1. TRAMADOL HCL [Concomitant]
     Indication: PAIN
     Dosage: EVERY 8 HOURS AS NEEDED
     Dates: start: 20050101
  2. ACETAMINOPHEN [Concomitant]
     Indication: PAIN
     Route: 048
  3. HUMIRA [Suspect]
     Indication: RHEUMATOID ARTHRITIS
     Route: 058
     Dates: start: 20110615, end: 20110818
  4. PREDNISONE [Concomitant]
     Indication: PAIN
     Route: 048
     Dates: start: 20110829
  5. METHOTREXATE [Concomitant]
     Indication: RHEUMATOID ARTHRITIS
     Route: 048
     Dates: start: 20100901

REACTIONS (11)
  - BLOOD GLUCOSE INCREASED [None]
  - BLOOD PROLACTIN INCREASED [None]
  - BRONCHOSPASM [None]
  - FATIGUE [None]
  - SEPSIS [None]
  - RESPIRATORY ALKALOSIS [None]
  - BLOOD POTASSIUM DECREASED [None]
  - CHEST PAIN [None]
  - DYSPNOEA [None]
  - ARTHRALGIA [None]
  - BACK PAIN [None]
